FAERS Safety Report 8183316-5 (Version None)
Quarter: 2012Q1

REPORT INFORMATION
  Report Type: 
  Country: None (occurrence: None)
  Receive Date: 20120201
  Receipt Date: 20110512
  Transmission Date: 20120608
  Serious: Yes (Hospitalization)
  Sender: FDA-Public Use
  Company Number: 281908USA

PATIENT
  Age: 84 Year
  Sex: Male

DRUGS (1)
  1. PROPOXYPHENE NAPSYLATE AND ACETAMINOPHEN [Suspect]
     Dates: start: 20100802

REACTIONS (6)
  - BALANCE DISORDER [None]
  - DISORIENTATION [None]
  - LISTLESS [None]
  - INFLUENZA LIKE ILLNESS [None]
  - FALL [None]
  - SPEECH DISORDER [None]
